FAERS Safety Report 10470019 (Version 1)
Quarter: 2014Q3

REPORT INFORMATION
  Report Type: Spontaneous
  Country: US (occurrence: None)
  Receive Date: 20140922
  Receipt Date: 20140922
  Transmission Date: 20150326
  Serious: Yes (Life-Threatening)
  Sender: FDA-Public Use
  Company Number: None

PATIENT
  Age: 26 Year
  Sex: Female
  Weight: 46.72 kg

DRUGS (4)
  1. VIIBRYD [Suspect]
     Active Substance: VILAZODONE HYDROCHLORIDE
     Indication: DEPRESSION
     Dosage: PART OF 2012 ONCE DAILY TAKEN BY MOUTH
     Route: 048
  2. EFFEXOR [Suspect]
     Active Substance: VENLAFAXINE HYDROCHLORIDE
     Indication: ANXIETY
     Dosage: 1 PILL ONCE DAILY TAKEN BY MOUTH
     Route: 048
     Dates: start: 2011, end: 2012
  3. VIIBRYD [Suspect]
     Active Substance: VILAZODONE HYDROCHLORIDE
     Indication: ANXIETY
     Dosage: PART OF 2012 ONCE DAILY TAKEN BY MOUTH
     Route: 048
  4. EFFEXOR [Suspect]
     Active Substance: VENLAFAXINE HYDROCHLORIDE
     Indication: DEPRESSION
     Dosage: 1 PILL ONCE DAILY TAKEN BY MOUTH
     Route: 048
     Dates: start: 2011, end: 2012

REACTIONS (25)
  - Confusional state [None]
  - Urinary incontinence [None]
  - Inappropriate schedule of drug administration [None]
  - Screaming [None]
  - Balance disorder [None]
  - Pyrexia [None]
  - Hyperhidrosis [None]
  - Loss of libido [None]
  - Anorgasmia [None]
  - Memory impairment [None]
  - Chills [None]
  - Hallucination, auditory [None]
  - Paraesthesia [None]
  - Self injurious behaviour [None]
  - Drug dependence [None]
  - Tremor [None]
  - Hypophagia [None]
  - Drug withdrawal syndrome [None]
  - Disorientation [None]
  - Marital problem [None]
  - Fall [None]
  - Loss of consciousness [None]
  - Psychotic disorder [None]
  - Suicidal ideation [None]
  - Impaired self-care [None]
